FAERS Safety Report 7215076-6 (Version None)
Quarter: 2011Q1

REPORT INFORMATION
  Report Type: 
  Country: None (occurrence: None)
  Receive Date: 20110107
  Receipt Date: 20100823
  Transmission Date: 20110831
  Serious: No
  Sender: FDA-Public Use
  Company Number: A0874902A

PATIENT
  Age: 57 Year
  Sex: Female
  Weight: 73.6 kg

DRUGS (2)
  1. LOVAZA [Suspect]
     Dosage: 2CAP TWICE PER DAY
     Route: 048
     Dates: start: 20100730, end: 20100802
  2. UNKNOWN [Concomitant]

REACTIONS (1)
  - VOMITING [None]
